FAERS Safety Report 15347650 (Version 1)
Quarter: 2018Q3

REPORT INFORMATION
  Report Type: Spontaneous
  Country: US (occurrence: US)
  Receive Date: 20180904
  Receipt Date: 20180904
  Transmission Date: 20181010
  Serious: Yes (Other)
  Sender: FDA-Public Use
  Company Number: US-009507513-1808USA013091

PATIENT
  Age: 54 Year
  Sex: Female

DRUGS (3)
  1. REBETOL [Suspect]
     Active Substance: RIBAVIRIN
     Dosage: UNK
  2. TELAPREVIR [Suspect]
     Active Substance: TELAPREVIR
     Indication: HEPATIC CIRRHOSIS
     Dosage: UNK
  3. PEGINTRON [Suspect]
     Active Substance: PEGINTERFERON ALFA-2B
     Indication: HEPATIC CIRRHOSIS
     Dosage: UNK

REACTIONS (1)
  - Pathogen resistance [Unknown]
